FAERS Safety Report 23779696 (Version 2)
Quarter: 2024Q2

REPORT INFORMATION
  Report Type: Report from Study
  Country: DO (occurrence: DO)
  Receive Date: 20240424
  Receipt Date: 20240430
  Transmission Date: 20240716
  Serious: Yes (Other)
  Sender: FDA-Public Use
  Company Number: DO-JNJFOC-20240446502

PATIENT
  Sex: Male
  Weight: 64 kg

DRUGS (1)
  1. IMBRUVICA [Suspect]
     Active Substance: IBRUTINIB
     Indication: Mantle cell lymphoma
     Route: 048
     Dates: start: 20220712

REACTIONS (2)
  - Neoplasm malignant [Unknown]
  - Neck mass [Unknown]
